FAERS Safety Report 14627822 (Version 1)
Quarter: 2018Q1

REPORT INFORMATION
  Report Type: Spontaneous
  Country: US (occurrence: US)
  Receive Date: 20180312
  Receipt Date: 20180312
  Transmission Date: 20180509
  Serious: No
  Sender: FDA-Public Use
  Company Number: PHEH2018US009327

PATIENT
  Age: 2 Year
  Sex: Male

DRUGS (1)
  1. FLUTICASONE PROPIONATE. [Suspect]
     Active Substance: FLUTICASONE PROPIONATE
     Indication: ORAL MUCOSAL ERUPTION
     Dosage: 0.005 %, QD
     Route: 065
     Dates: start: 20180306

REACTIONS (2)
  - Skin hypopigmentation [Unknown]
  - Drug prescribing error [Unknown]

NARRATIVE: CASE EVENT DATE: 20180307
